APPROVED DRUG PRODUCT: APREMILAST
Active Ingredient: APREMILAST
Strength: 20MG
Dosage Form/Route: TABLET;ORAL
Application: A211819 | Product #002
Applicant: UNICHEM LABORATORIES LTD
Approved: Feb 17, 2021 | RLD: No | RS: No | Type: DISCN